FAERS Safety Report 10337880 (Version 1)
Quarter: 2014Q3

REPORT INFORMATION
  Report Type: Spontaneous
  Country: US (occurrence: None)
  Receive Date: 20140723
  Receipt Date: 20140723
  Transmission Date: 20150326
  Serious: No
  Sender: FDA-Public Use
  Company Number: None

PATIENT

DRUGS (1)
  1. EPINEPHRINE EPINEPHRINE [Suspect]
     Active Substance: EPINEPHRINE

REACTIONS (4)
  - Blood pressure increased [None]
  - Heart rate increased [None]
  - Wrong technique in drug usage process [None]
  - Accidental overdose [None]
